FAERS Safety Report 14954634 (Version 4)
Quarter: 2018Q3

REPORT INFORMATION
  Report Type: Spontaneous
  Country: US (occurrence: US)
  Receive Date: 20180530
  Receipt Date: 20180710
  Transmission Date: 20181010
  Serious: No
  Sender: FDA-Public Use
  Company Number: US-GLAXOSMITHKLINE-US2018093538

PATIENT
  Age: 71 Year
  Sex: Female
  Weight: 46.26 kg

DRUGS (6)
  1. ASPIRIN. [Concomitant]
     Active Substance: ASPIRIN
  2. VENTOLIN HFA [Suspect]
     Active Substance: ALBUTEROL SULFATE
     Indication: CHRONIC OBSTRUCTIVE PULMONARY DISEASE
     Dosage: UNK UNK, U
  3. METOPROLOL. [Concomitant]
     Active Substance: METOPROLOL
  4. VENTOLIN HFA [Suspect]
     Active Substance: ALBUTEROL SULFATE
     Dosage: 2 PUFF(S), PRN
     Dates: end: 20180524
  5. PRAVASTATIN. [Concomitant]
     Active Substance: PRAVASTATIN
  6. SUCRALFATE. [Concomitant]
     Active Substance: SUCRALFATE

REACTIONS (5)
  - Respiratory tract irritation [Unknown]
  - Throat irritation [Unknown]
  - Wrong patient received medication [Unknown]
  - Oesophageal pain [Unknown]
  - Product quality issue [Unknown]

NARRATIVE: CASE EVENT DATE: 20180522
